FAERS Safety Report 6388153-X (Version None)
Quarter: 2009Q4

REPORT INFORMATION
  Report Type: 
  Country: None (occurrence: None)
  Receive Date: 20091001
  Receipt Date: 20091001
  Transmission Date: 20100525
  Serious: Yes (Other)
  Sender: FDA-Public Use
  Company Number: None

PATIENT
  Sex: Female
  Weight: 70.3075 kg

DRUGS (1)
  1. EVISTA [Suspect]
     Indication: BONE DISORDER
     Dosage: 30 1 DAY 622009
     Dates: start: 20080601, end: 20090630

REACTIONS (10)
  - BACK PAIN [None]
  - ECONOMIC PROBLEM [None]
  - HYPOAESTHESIA [None]
  - JOINT SWELLING [None]
  - LIMB INJURY [None]
  - LIP DISORDER [None]
  - MUSCLE TWITCHING [None]
  - PAIN IN EXTREMITY [None]
  - PARAESTHESIA [None]
  - WEIGHT INCREASED [None]
